FAERS Safety Report 10680984 (Version 3)
Quarter: 2015Q1

REPORT INFORMATION
  Report Type: Spontaneous
  Country: JP (occurrence: JP)
  Receive Date: 20141229
  Receipt Date: 20150320
  Transmission Date: 20150720
  Serious: Yes (Death, Life-Threatening, Hospitalization)
  Sender: FDA-Public Use
  Company Number: JP-B.I. PHARMACEUTICALS,INC./RIDGEFIELD-2014-BI-62422NB

PATIENT
  Age: 81 Year
  Sex: Female
  Weight: 35 kg

DRUGS (12)
  1. MAGMITT [Concomitant]
     Active Substance: MAGNESIUM OXIDE
     Indication: CONSTIPATION
     Dosage: 1980 MG
     Route: 048
     Dates: start: 20141125, end: 20141213
  2. HOKUNALIN:TAPE [Concomitant]
     Active Substance: TULOBUTEROL
     Indication: COUGH
     Dosage: 2 MG
     Route: 062
     Dates: start: 20141208
  3. SENNOSIDE [Concomitant]
     Active Substance: SENNOSIDES
     Indication: CONSTIPATION
     Dosage: 12 MG
     Route: 048
     Dates: start: 20141125, end: 20141213
  4. CALONAL [Concomitant]
     Active Substance: ACETAMINOPHEN
     Indication: HEADACHE
     Dosage: 400 MG
     Route: 048
     Dates: start: 20141114, end: 20141213
  5. GILOTRIF [Suspect]
     Active Substance: AFATINIB
     Indication: LUNG ADENOCARCINOMA
     Dosage: 30 MG
     Route: 048
     Dates: start: 20141025, end: 20141210
  6. MERCAZOLE [Concomitant]
     Active Substance: CARBIMAZOLE
     Indication: HYPERTHYROIDISM
     Dosage: DAILY DOSE: 2.5MG/ 1 TIME/ 2DAYS.
     Route: 048
     Dates: end: 20141213
  7. LOPERAMIDE [Concomitant]
     Active Substance: LOPERAMIDE
     Indication: DIARRHOEA
     Dosage: 1 MG
     Route: 048
     Dates: start: 20141111, end: 20141213
  8. CODEINE PHOSPHATE HYDRATE [Concomitant]
     Active Substance: CODEINE PHOSPHATE
     Indication: COUGH
     Dosage: 6 G
     Route: 048
     Dates: start: 20141014, end: 20141212
  9. METHYCOBAL [Concomitant]
     Active Substance: METHYLCOBALAMIN
     Indication: DIABETIC NEUROPATHY
     Dosage: 1500 MCG
     Route: 048
     Dates: start: 20090303, end: 20141213
  10. TRAZENTA [Concomitant]
     Active Substance: LINAGLIPTIN
     Indication: DIABETES MELLITUS
     Dosage: 5 MG
     Route: 048
     Dates: start: 20130618, end: 20141213
  11. MUCOSAL-L [Concomitant]
     Indication: SPUTUM RETENTION
     Dosage: 45 MG
     Route: 048
     Dates: start: 20141114, end: 20141213
  12. TRESIBA [Concomitant]
     Active Substance: INSULIN DEGLUDEC
     Indication: DIABETES MELLITUS
     Dosage: DAILY DOSE: / 1 TIME/ 6 WEEK
     Route: 058
     Dates: start: 20141209

REACTIONS (3)
  - Interstitial lung disease [Fatal]
  - Lymphangiosis carcinomatosa [Unknown]
  - Respiratory failure [Fatal]

NARRATIVE: CASE EVENT DATE: 20141210
